FAERS Safety Report 10739815 (Version 1)
Quarter: 2015Q1

REPORT INFORMATION
  Report Type: Spontaneous
  Country: US (occurrence: US)
  Receive Date: 20150127
  Receipt Date: 20150127
  Transmission Date: 20150721
  Serious: Yes (Hospitalization, Other)
  Sender: FDA-Public Use
  Company Number: US-JNJFOC-20150111376

PATIENT
  Age: 21 Year
  Sex: Male
  Weight: 69.99 kg

DRUGS (2)
  1. EXTRA STRENGTH TYLENOL PM [Suspect]
     Active Substance: ACETAMINOPHEN\DIPHENHYDRAMINE HYDROCHLORIDE
     Indication: SUICIDE ATTEMPT
     Route: 048
     Dates: start: 20050205
  2. ALCOHOL. [Suspect]
     Active Substance: ALCOHOL
     Indication: SUICIDE ATTEMPT
     Route: 048
     Dates: start: 20100205

REACTIONS (8)
  - Liver function test abnormal [Recovering/Resolving]
  - Vomiting [Unknown]
  - Intentional overdose [Recovering/Resolving]
  - Encephalopathy [Recovered/Resolved]
  - Somnolence [Recovered/Resolved]
  - International normalised ratio increased [Recovering/Resolving]
  - Drug level increased [Recovering/Resolving]
  - Nausea [Unknown]

NARRATIVE: CASE EVENT DATE: 20100205
